FAERS Safety Report 9685928 (Version 1)
Quarter: 2013Q4

REPORT INFORMATION
  Report Type: Spontaneous
  Country: US (occurrence: US)
  Receive Date: 20131113
  Receipt Date: 20131113
  Transmission Date: 20140711
  Serious: No
  Sender: FDA-Public Use
  Company Number: US-BAYER-2013-137454

PATIENT
  Age: 60 Year
  Sex: Female
  Weight: 57.6 kg

DRUGS (2)
  1. ALEVE TABLET [Suspect]
     Indication: ARTHRITIS
     Dosage: 2 DF, PRN
     Route: 048
     Dates: start: 2006, end: 20131105
  2. ALEVE TABLET [Suspect]
     Indication: ARTHRITIS
     Dosage: UNK, QD
     Route: 048
     Dates: start: 201301, end: 20131105

REACTIONS (7)
  - Urticaria [Not Recovered/Not Resolved]
  - Skin mass [Not Recovered/Not Resolved]
  - Pruritus [Not Recovered/Not Resolved]
  - Erythema [Not Recovered/Not Resolved]
  - Abdominal pain upper [Not Recovered/Not Resolved]
  - Epigastric discomfort [Not Recovered/Not Resolved]
  - Incorrect drug administration duration [None]
